FAERS Safety Report 22863263 (Version 2)
Quarter: 2023Q4

REPORT INFORMATION
  Report Type: Report from Study
  Country: BR (occurrence: BR)
  Receive Date: 20230824
  Receipt Date: 20231002
  Transmission Date: 20240110
  Serious: Yes (Other)
  Sender: FDA-Public Use
  Company Number: BR-BoehringerIngelheim-2023-BI-256617

PATIENT
  Age: 77 Year
  Sex: Female
  Weight: 37 kg

DRUGS (6)
  1. JARDIANCE [Suspect]
     Active Substance: EMPAGLIFLOZIN
     Indication: Diabetes mellitus
     Dosage: AFTER BREAKFAST
     Route: 048
     Dates: start: 20230516, end: 20230816
  2. GLYXAMBI [Suspect]
     Active Substance: EMPAGLIFLOZIN\LINAGLIPTIN
     Indication: Diabetes mellitus
     Dosage: GLYXAMBI 25MG + 5MG - 1 TABLET A DAY, ORALLY, AFTER BREAKFAST
     Route: 048
     Dates: start: 20230816
  3. ROSUVASTATIN [Concomitant]
     Active Substance: ROSUVASTATIN
     Indication: Blood cholesterol abnormal
     Dosage: 1 TABLET AT NIGHT
     Route: 048
     Dates: start: 20230517
  4. COENZIMA Q10 [Concomitant]
     Indication: Supplementation therapy
     Dosage: 1 TABLET A DAY AFTER LUNCH
     Route: 048
  5. CHOLECALCIFEROL [Concomitant]
     Active Substance: CHOLECALCIFEROL
     Indication: Supplementation therapy
     Dosage: 1 TABLET IN THE MORNING
     Route: 048
  6. ASPIRIN\DIHYDROXYALUMINUM AMINOACETATE ANHYDROUS\MAGNESIUM CARBONATE [Concomitant]
     Active Substance: ASPIRIN\DIHYDROXYALUMINUM AMINOACETATE ANHYDROUS\MAGNESIUM CARBONATE
     Indication: Anticoagulant therapy
     Dosage: 1 TABLET A DAY AFTER LUNCH
     Route: 048

REACTIONS (9)
  - Weight decreased [Unknown]
  - Drug ineffective [Unknown]
  - Drug ineffective [Unknown]
  - Dizziness postural [Not Recovered/Not Resolved]
  - Bone pain [Not Recovered/Not Resolved]
  - Malaise [Not Recovered/Not Resolved]
  - Dysstasia [Not Recovered/Not Resolved]
  - General physical condition abnormal [Unknown]
  - Pain [Unknown]

NARRATIVE: CASE EVENT DATE: 20230101
